FAERS Safety Report 4440801-7 (Version None)
Quarter: 2004Q3

REPORT INFORMATION
  Report Type: 
  Country: None (occurrence: None)
  Receive Date: 20040903
  Receipt Date: 20040825
  Transmission Date: 20050211
  Serious: Yes (Hospitalization)
  Sender: FDA-Public Use
  Company Number: FR-BRISTOL-MYERS SQUIBB COMPANY-12682332

PATIENT
  Age: 28 Year
  Sex: Male

DRUGS (2)
  1. AMIKIN [Suspect]
     Indication: ESCHERICHIA SEPSIS
     Route: 042
     Dates: start: 20031118, end: 20031127
  2. TIENAM [Suspect]
     Indication: ESCHERICHIA SEPSIS
     Route: 042
     Dates: start: 20031118, end: 20031127

REACTIONS (1)
  - NEUTROPENIA [None]
